FAERS Safety Report 20580934 (Version 1)
Quarter: 2022Q1

REPORT INFORMATION
  Report Type: Spontaneous
  Country: US (occurrence: None)
  Receive Date: 20220311
  Receipt Date: 20220311
  Transmission Date: 20220423
  Serious: No
  Sender: FDA-Public Use
  Company Number: 2022A098609

PATIENT
  Sex: Female
  Weight: 65.8 kg

DRUGS (1)
  1. BUDESONIDE\FORMOTEROL\GLYCOPYRRONIUM [Suspect]
     Active Substance: BUDESONIDE\FORMOTEROL\GLYCOPYRRONIUM
     Indication: Chronic obstructive pulmonary disease
     Dosage: 160MCG/9MCG/4.8MCG 120 INHALATIONS, 2 INHALATIONS TWO TIMES A DAY
     Route: 055

REACTIONS (6)
  - Blood pressure increased [Unknown]
  - Speech disorder [Unknown]
  - Sinus disorder [Unknown]
  - Dysphonia [Unknown]
  - Off label use [Unknown]
  - Device delivery system issue [Unknown]
